FAERS Safety Report 7268925-X (Version None)
Quarter: 2011Q1

REPORT INFORMATION
  Report Type: 
  Country: None (occurrence: None)
  Receive Date: 20110201
  Receipt Date: 20110121
  Transmission Date: 20110831
  Serious: Yes (Death, Hospitalization, Other)
  Sender: FDA-Public Use
  Company Number: AR-GENENTECH-310507

PATIENT
  Sex: Female
  Weight: 84.5 kg

DRUGS (10)
  1. ATENOLOL [Concomitant]
     Indication: HYPERTENSION
     Dosage: 50 MG, QD
     Route: 048
     Dates: end: 20101201
  2. MORPHINE [Concomitant]
     Indication: ANALGESIC THERAPY
     Dosage: 10 MG, UNK
     Dates: end: 20101201
  3. RANIBIZUMAB [Suspect]
     Indication: DIABETIC RETINAL OEDEMA
     Dosage: 23 UNK, 1/MONTH
     Route: 031
     Dates: start: 20081210, end: 20101103
  4. ASPIRIN [Concomitant]
     Indication: ANTIPLATELET THERAPY
     Dosage: 250 MG, QD
     Route: 048
     Dates: start: 20101101, end: 20101201
  5. RANITIDINE [Concomitant]
     Indication: PROPHYLAXIS
     Dosage: 50 MG, Q8H
     Dates: start: 20101101, end: 20101201
  6. METFORMIN HCL [Concomitant]
     Indication: DIABETES MELLITUS
     Dosage: 850 MG, QD
     Route: 048
     Dates: end: 20101201
  7. INSULIN [Concomitant]
     Indication: DIABETES MELLITUS
     Dosage: UNK
     Route: 048
     Dates: end: 20101201
  8. ALPRAZOLAM [Concomitant]
     Indication: SLEEP DISORDER
     Dosage: 5 MG, QD
     Route: 048
     Dates: end: 20101201
  9. HEPARIN [Concomitant]
     Indication: ANTICOAGULANT THERAPY
     Dosage: 5000 U, BID
     Route: 042
     Dates: start: 20101101, end: 20101201
  10. ESCITALOPRAM [Concomitant]
     Indication: DEPRESSION
     Dosage: 1 TABLET, UNK
     Route: 048
     Dates: end: 20101201

REACTIONS (1)
  - CEREBROVASCULAR ACCIDENT [None]
